FAERS Safety Report 21300202 (Version 1)
Quarter: 2022Q3

REPORT INFORMATION
  Report Type: Spontaneous
  Country: US (occurrence: None)
  Receive Date: 20220906
  Receipt Date: 20220906
  Transmission Date: 20221027
  Serious: Yes (Hospitalization)
  Sender: FDA-Public Use
  Company Number: None

PATIENT
  Age: 97 Year
  Sex: Male
  Weight: 174.63 kg

DRUGS (5)
  1. ABIRATERONE [Suspect]
     Active Substance: ABIRATERONE
     Indication: Prostate cancer
     Dosage: FREQUENCY : DAILY;?
     Route: 048
  2. DONEPEZIL [Concomitant]
     Active Substance: DONEPEZIL
  3. PROSCAR [Concomitant]
     Active Substance: FINASTERIDE
  4. VITAMIN D3 [Concomitant]
     Active Substance: CHOLECALCIFEROL
  5. PREDNISONE [Concomitant]
     Active Substance: PREDNISONE

REACTIONS (4)
  - Asthenia [None]
  - Pneumonia [None]
  - Aortic stenosis [None]
  - Therapy interrupted [None]
